FAERS Safety Report 5006157-6 (Version None)
Quarter: 2006Q1

REPORT INFORMATION
  Report Type: 
  Country: None (occurrence: None)
  Receive Date: 20060328
  Receipt Date: 20060110
  Transmission Date: 20060701
  Serious: Yes (Hospitalization)
  Sender: FDA-Public Use
  Company Number: K200600022

PATIENT
  Age: 59 Year
  Sex: Male

DRUGS (8)
  1. ALTACE [Suspect]
     Indication: HYPERTENSION
  2. AMARYL [Concomitant]
  3. METOPROLOL SUCCINATE [Concomitant]
  4. ASPIRIN [Concomitant]
  5. PROTONIX [Concomitant]
  6. XANAX [Concomitant]
  7. DARVOCET-N 100 [Concomitant]
  8. MAALOX /NET/ (ALGELDRATE, MAGNESIUM HYDROXIDE) [Concomitant]

REACTIONS (1)
  - RASH [None]
